FAERS Safety Report 8521851-8 (Version None)
Quarter: 2012Q3

REPORT INFORMATION
  Report Type: 
  Country: None (occurrence: None)
  Receive Date: 20120719
  Receipt Date: 20120511
  Transmission Date: 20120928
  Serious: No
  Sender: FDA-Public Use
  Company Number: US-BRISTOL-MYERS SQUIBB COMPANY-16560203

PATIENT
  Age: 53 Year
  Sex: Female

DRUGS (5)
  1. YERVOY [Suspect]
  2. ZOLOFT [Concomitant]
  3. GABAPENTIN [Concomitant]
  4. LAMICTAL [Concomitant]
  5. TOPAMAX [Concomitant]

REACTIONS (1)
  - DEPRESSION [None]
